FAERS Safety Report 16334713 (Version 5)
Quarter: 2021Q1

REPORT INFORMATION
  Report Type: Spontaneous
  Country: US (occurrence: US)
  Receive Date: 20190520
  Receipt Date: 20210105
  Transmission Date: 20210419
  Serious: Yes (Disabling, Other)
  Sender: FDA-Public Use
  Company Number: US-GILEAD-2019-0408522

PATIENT
  Age: 59 Year
  Sex: Male
  Weight: 75.7 kg

DRUGS (47)
  1. STRIBILD [Suspect]
     Active Substance: COBICISTAT\ELVITEGRAVIR\EMTRICITABINE\TENOFOVIR DISOPROXIL FUMARATE
     Indication: HIV INFECTION
     Dosage: UNK
     Route: 065
     Dates: start: 201303, end: 201609
  2. SULFAMETHOXAZOLE AND TRIMETHOPRIM [Concomitant]
     Active Substance: SULFAMETHOXAZOLE\TRIMETHOPRIM
  3. DIAZEPAM. [Concomitant]
     Active Substance: DIAZEPAM
  4. REYATAZ [Concomitant]
     Active Substance: ATAZANAVIR SULFATE
  5. ZOLPIDEM [Concomitant]
     Active Substance: ZOLPIDEM TARTRATE
  6. QUETIAPINE. [Concomitant]
     Active Substance: QUETIAPINE
  7. LAMOTRIGINE. [Concomitant]
     Active Substance: LAMOTRIGINE
  8. EPIVIR [Concomitant]
     Active Substance: LAMIVUDINE
  9. DIDANOSINE. [Concomitant]
     Active Substance: DIDANOSINE
  10. ANDROGEL [Concomitant]
     Active Substance: TESTOSTERONE
  11. NICODERM CQ [Concomitant]
     Active Substance: NICOTINE
  12. OXANDROLONE. [Concomitant]
     Active Substance: OXANDROLONE
  13. BACTRIM [Concomitant]
     Active Substance: SULFAMETHOXAZOLE\TRIMETHOPRIM
  14. AMBIEN [Concomitant]
     Active Substance: ZOLPIDEM TARTRATE
  15. TESTOSTERONE. [Concomitant]
     Active Substance: TESTOSTERONE
  16. TRUVADA [Suspect]
     Active Substance: EMTRICITABINE\TENOFOVIR DISOPROXIL FUMARATE
     Indication: HIV INFECTION
     Dosage: UNK
     Route: 048
     Dates: start: 200803, end: 201611
  17. GENOTROPIN [Concomitant]
     Active Substance: SOMATROPIN
  18. TRAZODONE [Concomitant]
     Active Substance: TRAZODONE HYDROCHLORIDE
  19. ENDOCET [Concomitant]
     Active Substance: ACETAMINOPHEN\OXYCODONE HYDROCHLORIDE
  20. NEFAZODONE HCL [Concomitant]
     Active Substance: NEFAZODONE HYDROCHLORIDE
  21. VIDEX [Concomitant]
     Active Substance: DIDANOSINE
  22. ATRIPLA [Suspect]
     Active Substance: EFAVIRENZ\EMTRICITABINE\TENOFOVIR DISOPROXIL FUMARATE
     Indication: HIV INFECTION
     Route: 065
  23. DRONABINOL. [Concomitant]
     Active Substance: DRONABINOL
  24. SEROQUEL [Concomitant]
     Active Substance: QUETIAPINE FUMARATE
  25. ALENDRONATE [Concomitant]
     Active Substance: ALENDRONATE SODIUM
  26. ATORVASTATINE [ATORVASTATIN] [Concomitant]
     Active Substance: ATORVASTATIN
  27. PENICILLIN NOS [Concomitant]
     Active Substance: PENICILLIN
  28. PREDNISONE. [Concomitant]
     Active Substance: PREDNISONE
  29. COMBIVIR [Concomitant]
     Active Substance: LAMIVUDINE\ZIDOVUDINE
  30. EDURANT [Concomitant]
     Active Substance: RILPIVIRINE HYDROCHLORIDE
  31. GENVOYA [Concomitant]
     Active Substance: COBICISTAT\ELVITEGRAVIR\EMTRICITABINE\TENOFOVIR ALAFENAMIDE FUMARATE
  32. BUPROPION. [Concomitant]
     Active Substance: BUPROPION
  33. ACYCLOVIR [ACICLOVIR] [Concomitant]
     Active Substance: ACYCLOVIR
  34. DEPAKOTE [Concomitant]
     Active Substance: DIVALPROEX SODIUM
  35. FLUCONAZOLE. [Concomitant]
     Active Substance: FLUCONAZOLE
  36. SEROSTIM [Concomitant]
     Active Substance: SOMATROPIN
  37. PERCOCET [OXYCODONE HYDROCHLORIDE;OXYCODONE TEREPHTHALATE;PARACETAMOL] [Concomitant]
     Active Substance: ACETAMINOPHEN\OXYCODONE HYDROCHLORIDE\OXYCODONE TEREPHTHALATE
  38. SUSTIVA [Concomitant]
     Active Substance: EFAVIRENZ
  39. ZERIT [Concomitant]
     Active Substance: STAVUDINE
  40. PROCHLORPERAZINE MALEATE. [Concomitant]
     Active Substance: PROCHLORPERAZINE MALEATE
  41. KETOCONAZOLE. [Concomitant]
     Active Substance: KETOCONAZOLE
  42. CEPHALEXIN [CEFALEXIN] [Concomitant]
     Active Substance: CEPHALEXIN
  43. VIREAD [Suspect]
     Active Substance: TENOFOVIR DISOPROXIL FUMARATE
     Indication: HIV INFECTION
     Dosage: 1 DOSAGE FORM, QD
     Route: 048
     Dates: start: 200402, end: 201303
  44. ABILIFY [Concomitant]
     Active Substance: ARIPIPRAZOLE
  45. MIRTAZAPINE. [Concomitant]
     Active Substance: MIRTAZAPINE
  46. PROCHLORPERAZINE. [Concomitant]
     Active Substance: PROCHLORPERAZINE
  47. FAMOTIDINE. [Concomitant]
     Active Substance: FAMOTIDINE

REACTIONS (16)
  - Osteoporosis [Not Recovered/Not Resolved]
  - Femoral neck fracture [Unknown]
  - Emotional distress [Unknown]
  - Anhedonia [Unknown]
  - Anxiety [Not Recovered/Not Resolved]
  - Depression [Not Recovered/Not Resolved]
  - Economic problem [Unknown]
  - Bone density decreased [Not Recovered/Not Resolved]
  - Fall [Unknown]
  - Osteomalacia [Not Recovered/Not Resolved]
  - Osteopenia [Not Recovered/Not Resolved]
  - Gait disturbance [Not Recovered/Not Resolved]
  - Ankle fracture [Unknown]
  - Tooth loss [Recovered/Resolved]
  - Pain [Unknown]
  - Osteoporotic fracture [Unknown]

NARRATIVE: CASE EVENT DATE: 2008
